FAERS Safety Report 16432060 (Version 4)
Quarter: 2020Q1

REPORT INFORMATION
  Report Type: Report from Study
  Country: US (occurrence: US)
  Receive Date: 20190614
  Receipt Date: 20200130
  Transmission Date: 20200409
  Serious: Yes (Other)
  Sender: FDA-Public Use
  Company Number: PHEH2019US024493

PATIENT
  Age: 36 Year
  Sex: Female

DRUGS (1)
  1. GILENYA [Suspect]
     Active Substance: FINGOLIMOD HYDROCHLORIDE
     Indication: MULTIPLE SCLEROSIS
     Dosage: 0.5 MG, QD
     Route: 048
     Dates: start: 20180510

REACTIONS (12)
  - Skin discolouration [Unknown]
  - Headache [Recovering/Resolving]
  - Hemiparesis [Not Recovered/Not Resolved]
  - Peripheral arterial occlusive disease [Unknown]
  - Aphasia [Recovering/Resolving]
  - Dyspnoea [Not Recovered/Not Resolved]
  - Migraine [Recovering/Resolving]
  - Heart rate decreased [Unknown]
  - Visual impairment [Recovering/Resolving]
  - Abdominal pain upper [Not Recovered/Not Resolved]
  - Facial paralysis [Not Recovered/Not Resolved]
  - Confusional state [Recovering/Resolving]

NARRATIVE: CASE EVENT DATE: 20190822
